FAERS Safety Report 14202718 (Version 2)
Quarter: 2017Q4

REPORT INFORMATION
  Report Type: Spontaneous
  Country: JP (occurrence: JP)
  Receive Date: 20171118
  Receipt Date: 20171201
  Transmission Date: 20180321
  Serious: Yes (Life-Threatening, Other)
  Sender: FDA-Public Use
  Company Number: JP-SUN PHARMACEUTICAL INDUSTRIES LTD-2017R1-155058

PATIENT
  Age: 76 Year
  Sex: Male

DRUGS (1)
  1. METHOTREXATE. [Suspect]
     Active Substance: METHOTREXATE
     Indication: RHEUMATIC DISORDER
     Dosage: UNK
     Route: 065
     Dates: start: 2011, end: 2016

REACTIONS (2)
  - Lymphoproliferative disorder [Recovering/Resolving]
  - Diffuse large B-cell lymphoma [Recovering/Resolving]
